FAERS Safety Report 5153796-8 (Version None)
Quarter: 2006Q4

REPORT INFORMATION
  Report Type: 
  Country: None (occurrence: None)
  Receive Date: 20061120
  Receipt Date: 20061107
  Transmission Date: 20070319
  Serious: Yes (Hospitalization)
  Sender: FDA-Public Use
  Company Number: PHRM2006FR03000

PATIENT
  Age: 80 Year
  Sex: Male

DRUGS (1)
  1. TRILEPTAL [Suspect]
     Indication: EPILEPSY
     Dosage: 300 MG, BID
     Route: 048
     Dates: start: 20040615, end: 20061001

REACTIONS (8)
  - ANAEMIA MACROCYTIC [None]
  - APLASIA PURE RED CELL [None]
  - APLASTIC ANAEMIA [None]
  - BLOOD ERYTHROPOIETIN INCREASED [None]
  - GRANULOCYTES MATURATION ARREST [None]
  - HAEMOGLOBIN DECREASED [None]
  - RETICULOCYTE COUNT INCREASED [None]
  - SERUM FERRITIN INCREASED [None]
